FAERS Safety Report 22113159 (Version 2)
Quarter: 2023Q2

REPORT INFORMATION
  Report Type: Spontaneous
  Country: US (occurrence: US)
  Receive Date: 20230320
  Receipt Date: 20230404
  Transmission Date: 20230721
  Serious: No
  Sender: FDA-Public Use
  Company Number: US-SA-SAC20230316000199

PATIENT
  Age: 70 Year
  Sex: Female
  Weight: 83 kg

DRUGS (27)
  1. DUPIXENT [Suspect]
     Active Substance: DUPILUMAB
     Indication: Dermatitis atopic
     Dosage: 300 MG, QOW
     Route: 058
     Dates: start: 20221229
  2. FLONASE ALLERGY RELIEF [Concomitant]
     Active Substance: FLUTICASONE PROPIONATE
  3. MELATONIN [Concomitant]
     Active Substance: MELATONIN
  4. ASCORBIC ACID [Concomitant]
     Active Substance: ASCORBIC ACID
  5. VITAMIN D3 [Concomitant]
     Active Substance: CHOLECALCIFEROL
  6. HERBALS\WITHANIA SOMNIFERA ROOT [Concomitant]
     Active Substance: HERBALS\WITHANIA SOMNIFERA ROOT
  7. TACROLIMUS [Concomitant]
     Active Substance: TACROLIMUS
  8. LIDOCAINE [Concomitant]
     Active Substance: LIDOCAINE
  9. MAGNESIUM [Concomitant]
     Active Substance: MAGNESIUM
  10. DICLOFENAC SODIUM [Concomitant]
     Active Substance: DICLOFENAC SODIUM
  11. CLOBETASOL [Concomitant]
     Active Substance: CLOBETASOL
  12. LEVOTHYROXINE [Concomitant]
     Active Substance: LEVOTHYROXINE
  13. TRAMADOL HCL [Concomitant]
     Active Substance: TRAMADOL HYDROCHLORIDE
  14. MORPHINE SULFATE [Concomitant]
     Active Substance: MORPHINE SULFATE
  15. TYLENOL [Concomitant]
     Active Substance: ACETAMINOPHEN
  16. LEVOCETIRIZINE DIHYDROCHLORIDE [Concomitant]
     Active Substance: LEVOCETIRIZINE DIHYDROCHLORIDE
  17. LEXAPRO [Concomitant]
     Active Substance: ESCITALOPRAM OXALATE
  18. HYDROXYZINE HYDROCHLORIDE [Concomitant]
     Active Substance: HYDROXYZINE HYDROCHLORIDE
  19. LORAZEPAM [Concomitant]
     Active Substance: LORAZEPAM
  20. LANSOPRAZOLE [Concomitant]
     Active Substance: LANSOPRAZOLE
  21. HYDROCHLOROTHIAZIDE [Concomitant]
     Active Substance: HYDROCHLOROTHIAZIDE
  22. BIFIDOBACTERIUM ANIMALIS LACTIS [Concomitant]
     Active Substance: BIFIDOBACTERIUM ANIMALIS LACTIS
  23. COENZYME Q10 [Concomitant]
     Active Substance: DIETARY SUPPLEMENT\UBIDECARENONE
  24. VITAMIN B12 [Concomitant]
     Active Substance: CYANOCOBALAMIN
  25. ALOE VERA LEAF [Concomitant]
     Active Substance: ALOE VERA LEAF
  26. VITAMINS NOS [Concomitant]
     Active Substance: VITAMINS
  27. CINNAMON\HERBALS [Concomitant]
     Active Substance: CINNAMON\HERBALS

REACTIONS (8)
  - Rebound atopic dermatitis [Recovering/Resolving]
  - Initial insomnia [Not Recovered/Not Resolved]
  - Condition aggravated [Not Recovered/Not Resolved]
  - Injection site pruritus [Unknown]
  - Injection site swelling [Recovered/Resolved]
  - Injection site bruising [Recovered/Resolved]
  - Dermatitis atopic [Unknown]
  - Oral herpes [Recovered/Resolved]

NARRATIVE: CASE EVENT DATE: 20230101
